FAERS Safety Report 6264248-6 (Version None)
Quarter: 2009Q3

REPORT INFORMATION
  Report Type: 
  Country: None (occurrence: None)
  Receive Date: 20090710
  Receipt Date: 20090706
  Transmission Date: 20100115
  Serious: Yes (Death, Life-Threatening, Hospitalization)
  Sender: FDA-Public Use
  Company Number: FR-ASTRAZENECA-2009SE04044

PATIENT
  Age: 76 Year
  Sex: Male

DRUGS (2)
  1. CASODEX [Suspect]
     Indication: PROSTATE CANCER
     Route: 048
     Dates: end: 20090201
  2. ZOLADEX [Suspect]
     Indication: PROSTATE CANCER
     Dosage: ONCE/SINGLE ADMINISTRATION
     Route: 058
     Dates: start: 20090211, end: 20090211

REACTIONS (2)
  - HEPATIC ENCEPHALOPATHY [None]
  - HEPATITIS FULMINANT [None]
